FAERS Safety Report 11031306 (Version 2)
Quarter: 2015Q2

REPORT INFORMATION
  Report Type: Spontaneous
  Country: US (occurrence: US)
  Receive Date: 20150415
  Receipt Date: 20150421
  Transmission Date: 20150821
  Serious: No
  Sender: FDA-Public Use
  Company Number: US-PFIZER INC-2015125013

PATIENT
  Age: 77 Year
  Sex: Male
  Weight: 104.31 kg

DRUGS (3)
  1. DOXYCYCLINE HYCLATE. [Suspect]
     Active Substance: DOXYCYCLINE HYCLATE
     Dosage: 1 DF, 2X/DAY
     Route: 048
     Dates: start: 20150324
  2. DIFLUCAN [Suspect]
     Active Substance: FLUCONAZOLE
     Indication: CELLULITIS
  3. DIFLUCAN [Suspect]
     Active Substance: FLUCONAZOLE
     Indication: FUNGAL INFECTION
     Dosage: 100 MG, 1X/DAY
     Route: 048
     Dates: start: 20150324, end: 20150329

REACTIONS (5)
  - Hypersensitivity [Unknown]
  - Dizziness [Recovered/Resolved]
  - Abdominal discomfort [Recovered/Resolved]
  - Heart rate irregular [Recovered/Resolved]
  - Alopecia [Not Recovered/Not Resolved]

NARRATIVE: CASE EVENT DATE: 20150324
